FAERS Safety Report 4760524-4 (Version None)
Quarter: 2005Q3

REPORT INFORMATION
  Report Type: 
  Country: None (occurrence: None)
  Receive Date: 20050823
  Receipt Date: 20050422
  Transmission Date: 20060218
  Serious: Yes (Congenital Anomaly)
  Sender: FDA-Public Use
  Company Number: 403010

PATIENT

DRUGS (1)
  1. ACCUTANE [Suspect]
     Indication: DRUG USE FOR UNKNOWN INDICATION

REACTIONS (6)
  - CONGENITAL ANOMALY [None]
  - CONGENITAL CEREBELLAR AGENESIS [None]
  - CONGENITAL EYELID MALFORMATION [None]
  - EYE DISORDER [None]
  - IIIRD NERVE DISORDER [None]
  - PREGNANCY [None]
